FAERS Safety Report 5627970-8 (Version None)
Quarter: 2008Q1

REPORT INFORMATION
  Report Type: 
  Country: None (occurrence: None)
  Receive Date: 20080215
  Receipt Date: 20080214
  Transmission Date: 20080703
  Serious: Yes (Other)
  Sender: FDA-Public Use
  Company Number: US-BRISTOL-MYERS SQUIBB COMPANY-14063168

PATIENT
  Age: 66 Year
  Sex: Female

DRUGS (3)
  1. KENALOG-40 [Suspect]
     Indication: LUMBAR SPINAL STENOSIS
     Dosage: SINGLE DOSE OF 2CC (80MG),ROUTE-TRANSFORAMINAL EPIDURAL INJECTION(NERVE BLOCK).
     Route: 008
     Dates: start: 20071101
  2. ISOVUE-128 [Concomitant]
     Dosage: 1 DOSAGE FORM = 1/2 C.C, ISOVUE M-200.
  3. SODIUM CHLORIDE 0.9% [Concomitant]

REACTIONS (3)
  - MUSCLE SPASMS [None]
  - SPINAL CORD OEDEMA [None]
  - URTICARIA [None]
